FAERS Safety Report 9147345 (Version 1)
Quarter: 2013Q1

REPORT INFORMATION
  Report Type: Spontaneous
  Country: US (occurrence: US)
  Receive Date: 20130307
  Receipt Date: 20130307
  Transmission Date: 20140127
  Serious: No
  Sender: FDA-Public Use
  Company Number: US-PFIZER INC-2013079581

PATIENT
  Sex: Male

DRUGS (2)
  1. LYRICA [Suspect]
     Indication: NEUROPATHY PERIPHERAL
     Dosage: 75 MG, UNK
  2. LYRICA [Suspect]
     Dosage: UNK

REACTIONS (3)
  - Somnolence [Unknown]
  - Drug ineffective [Unknown]
  - Pain [Unknown]
